FAERS Safety Report 5319454-1 (Version None)
Quarter: 2007Q2

REPORT INFORMATION
  Report Type: 
  Country: None (occurrence: None)
  Receive Date: 20070508
  Receipt Date: 20070423
  Transmission Date: 20071010
  Serious: Yes (Hospitalization)
  Sender: FDA-Public Use
  Company Number: GB-GENENTECH-223269

PATIENT
  Sex: Male

DRUGS (3)
  1. BEVACIZUMAB [Suspect]
     Indication: COLON CANCER
     Dosage: 575 MG, Q3W
     Route: 042
     Dates: start: 20060207, end: 20060228
  2. CAPECITABINE [Suspect]
     Indication: COLON CANCER
     Dosage: 2500 MG, BID
     Route: 048
     Dates: start: 20060207, end: 20060312
  3. PROCHLORPERAZINE [Concomitant]
     Indication: DRUG USE FOR UNKNOWN INDICATION
     Dates: start: 20030617, end: 20060320

REACTIONS (7)
  - DEEP VEIN THROMBOSIS [None]
  - EPISTAXIS [None]
  - HAEMATEMESIS [None]
  - HEADACHE [None]
  - OESOPHAGEAL ULCER [None]
  - PHOTOPHOBIA [None]
  - VOMITING [None]
